FAERS Safety Report 18500058 (Version 1)
Quarter: 2020Q4

REPORT INFORMATION
  Report Type: Spontaneous
  Country: SA (occurrence: SA)
  Receive Date: 20201113
  Receipt Date: 20201113
  Transmission Date: 20210114
  Serious: Yes (Life-Threatening, Hospitalization)
  Sender: FDA-Public Use
  Company Number: SA-JNJFOC-20201115205

PATIENT
  Age: 26 Year
  Sex: Female

DRUGS (2)
  1. METHANOL [Suspect]
     Active Substance: METHYL ALCOHOL
     Indication: PRODUCT USED FOR UNKNOWN INDICATION
     Route: 048
  2. PARACETAMOL [Suspect]
     Active Substance: ACETAMINOPHEN
     Indication: PRODUCT USED FOR UNKNOWN INDICATION
     Route: 048

REACTIONS (13)
  - Supraventricular tachycardia [Unknown]
  - Abdominal pain [Unknown]
  - Haemodynamic instability [Unknown]
  - Overdose [Unknown]
  - Osmolar gap increased [Unknown]
  - Ketoacidosis [Unknown]
  - Vomiting [Unknown]
  - Confusional state [Unknown]
  - Metabolic acidosis [Recovered/Resolved]
  - Haemorrhage [Unknown]
  - Unresponsive to stimuli [Recovered/Resolved]
  - Toxic optic neuropathy [Recovered/Resolved]
  - Hyperlactacidaemia [Unknown]
